FAERS Safety Report 6253891-6 (Version None)
Quarter: 2009Q3

REPORT INFORMATION
  Report Type: 
  Country: None (occurrence: None)
  Receive Date: 20090702
  Receipt Date: 20090622
  Transmission Date: 20100115
  Serious: Yes (Other)
  Sender: FDA-Public Use
  Company Number: PHHY2009BR25436

PATIENT
  Age: 79 Year
  Sex: Female

DRUGS (2)
  1. EXELON [Suspect]
     Indication: DEMENTIA
     Dosage: 9MG/5CM2, ONCE DAILY
     Route: 062
     Dates: start: 20090301, end: 20090501
  2. EXELON [Suspect]
     Dosage: 18MG/10CM2, ONCE DAILY
     Route: 062
     Dates: start: 20090501

REACTIONS (5)
  - CHOKING SENSATION [None]
  - MALAISE [None]
  - NAUSEA [None]
  - SYNCOPE [None]
  - VOMITING [None]
